FAERS Safety Report 10787136 (Version 2)
Quarter: 2015Q2

REPORT INFORMATION
  Report Type: Spontaneous
  Country: US (occurrence: US)
  Receive Date: 20150211
  Receipt Date: 20150506
  Transmission Date: 20150821
  Serious: No
  Sender: FDA-Public Use
  Company Number: US-GLAXOSMITHKLINE-US2015GSK018255

PATIENT
  Age: 29 Year
  Sex: Male
  Weight: 86.17 kg

DRUGS (13)
  1. FLUCONAZOLE. [Concomitant]
     Active Substance: FLUCONAZOLE
  2. FISH OIL [Concomitant]
     Active Substance: FISH OIL
  3. NYSTATIN. [Concomitant]
     Active Substance: NYSTATIN
  4. PROCHLORPERAZINE MALEATE. [Concomitant]
     Active Substance: PROCHLORPERAZINE MALEATE
  5. TAFINLAR [Suspect]
     Active Substance: DABRAFENIB MESYLATE
     Indication: MALIGNANT MELANOMA
     Dosage: 150 MG, BID
     Route: 048
     Dates: start: 20150311
  6. EXCEDRIN [Concomitant]
     Active Substance: ACETAMINOPHEN\ASPIRIN\CAFFEINE
  7. HYDROCORTISONE. [Concomitant]
     Active Substance: HYDROCORTISONE
  8. ASPIRIN. [Concomitant]
     Active Substance: ASPIRIN
  9. TAFINLAR [Suspect]
     Active Substance: DABRAFENIB MESYLATE
     Indication: METASTATIC MALIGNANT MELANOMA
     Dosage: 150 MG, QD
     Route: 048
     Dates: start: 20141125
  10. DEXAMETHASONE. [Concomitant]
     Active Substance: DEXAMETHASONE
  11. VITAMIN D3 [Concomitant]
     Active Substance: CHOLECALCIFEROL
  12. ONDANSETRON HCL TABLET [Concomitant]
  13. ONDANSETRON ODT [Concomitant]
     Active Substance: ONDANSETRON

REACTIONS (4)
  - Adverse event [Unknown]
  - Candida infection [Unknown]
  - Tooth extraction [Unknown]
  - Drug ineffective [Unknown]

NARRATIVE: CASE EVENT DATE: 20141221
